FAERS Safety Report 6488667-8 (Version None)
Quarter: 2009Q4

REPORT INFORMATION
  Report Type: 
  Country: None (occurrence: None)
  Receive Date: 20091210
  Receipt Date: 20090219
  Transmission Date: 20100525
  Serious: Yes (Death)
  Sender: FDA-Public Use
  Company Number: US-PFIZER INC-2009172977

PATIENT
  Age: 78 Year

DRUGS (3)
  1. CELEBREX [Suspect]
     Indication: PANCREATIC CARCINOMA
     Dosage: 400 MG, 2X/DAY
  2. IRINOTECAN HCL [Suspect]
     Indication: PANCREATIC CARCINOMA
     Dosage: 100 MG/M2, CYCLIC
     Route: 042
  3. GEMCITABINE [Suspect]
     Indication: PANCREATIC CARCINOMA
     Dosage: 1000 MG/M2, CYCLIC
     Route: 042

REACTIONS (3)
  - DIARRHOEA [None]
  - NEUTROPENIA [None]
  - SEPSIS [None]
